FAERS Safety Report 21802411 (Version 2)
Quarter: 2023Q1

REPORT INFORMATION
  Report Type: Spontaneous
  Country: NL (occurrence: NL)
  Receive Date: 20221231
  Receipt Date: 20230307
  Transmission Date: 20230417
  Serious: Yes (Other)
  Sender: FDA-Public Use
  Company Number: NL-LRB-00857790

PATIENT
  Sex: Female
  Weight: 93 kg

DRUGS (1)
  1. ALFUZOSIN [Suspect]
     Active Substance: ALFUZOSIN
     Indication: Micturition disorder
     Dosage: 10 MILLIGRAM, ONCE A DAY91 X PER DAY)
     Route: 065
     Dates: start: 20221213

REACTIONS (2)
  - Loss of consciousness [Recovering/Resolving]
  - Dizziness [Recovering/Resolving]
